FAERS Safety Report 6506170-3 (Version None)
Quarter: 2009Q4

REPORT INFORMATION
  Report Type: 
  Country: None (occurrence: None)
  Receive Date: 20091218
  Receipt Date: 20091211
  Transmission Date: 20100525
  Serious: Yes (Other)
  Sender: FDA-Public Use
  Company Number: US-ELI_LILLY_AND_COMPANY-US200912002737

PATIENT
  Sex: Male
  Weight: 70.295 kg

DRUGS (8)
  1. BYETTA [Suspect]
     Indication: TYPE 2 DIABETES MELLITUS
     Dosage: 5 UG, 2/D
     Route: 058
     Dates: start: 20071201, end: 20080101
  2. BYETTA [Suspect]
     Dosage: 10 UG, 2/D
     Route: 058
     Dates: start: 20080101
  3. ACTOS [Concomitant]
     Indication: TYPE 2 DIABETES MELLITUS
     Dosage: UNK, 2/D
  4. COREG CR [Concomitant]
     Indication: CARDIAC DISORDER
     Dosage: 40 MG, DAILY (1/D)
  5. COZAAR [Concomitant]
     Dosage: 100 MG, UNK
  6. FUROSEMIDE [Concomitant]
     Dosage: 40 MG, UNK
  7. SIMVASTATIN [Concomitant]
     Indication: BLOOD CHOLESTEROL
     Dosage: 40 MG, UNK
  8. AMIODARONE HCL [Concomitant]
     Indication: CARDIAC DISORDER
     Dosage: 200 MG, UNK

REACTIONS (12)
  - BLOOD GLUCOSE DECREASED [None]
  - DECREASED APPETITE [None]
  - DEVICE MALFUNCTION [None]
  - DIZZINESS [None]
  - DYSGEUSIA [None]
  - HYPERHIDROSIS [None]
  - HYPOGLYCAEMIC UNCONSCIOUSNESS [None]
  - INCORRECT DOSE ADMINISTERED [None]
  - NAUSEA [None]
  - PAROSMIA [None]
  - PRODUCT QUALITY ISSUE [None]
  - WEIGHT DECREASED [None]
